FAERS Safety Report 17444844 (Version 1)
Quarter: 2020Q1

REPORT INFORMATION
  Report Type: Spontaneous
  Country: DE (occurrence: DE)
  Receive Date: 20200221
  Receipt Date: 20200221
  Transmission Date: 20200409
  Serious: Yes (Hospitalization, Other)
  Sender: FDA-Public Use
  Company Number: DE-TEVA-2020-DE-1189591

PATIENT
  Age: 78 Year
  Sex: Male
  Weight: 81 kg

DRUGS (9)
  1. VERAPAMIL [Interacting]
     Active Substance: VERAPAMIL HYDROCHLORIDE
     Dosage: 120 MILLIGRAM DAILY; 120 MG, 1-0-0-0, EXTENDED-RELEASE TABLETS
     Route: 048
  2. FLUTICASONE/ SALMETEROL [Concomitant]
     Dosage: 2 DOSAGE FORMS DAILY; 250|50 MCG, 1-0-1-0
     Route: 055
  3. ATORVASTATIN [Interacting]
     Active Substance: ATORVASTATIN
     Dosage: 40 MILLIGRAM DAILY; 40 MG, 0-0-0-1
     Route: 048
  4. PANTOPRAZOL [Concomitant]
     Active Substance: PANTOPRAZOLE SODIUM
     Dosage: 40 MILLIGRAM DAILY; 40 MG, 1-0-0-0
     Route: 048
  5. LOSARTAN. [Suspect]
     Active Substance: LOSARTAN
     Dosage: 100 MILLIGRAM DAILY; 100 MG, 0-0-1-0
     Route: 048
  6. TORASEMIDE [Interacting]
     Active Substance: TORSEMIDE
     Dosage: 5 MILLIGRAM DAILY; 5 MG, 1-0-0-0
     Route: 048
  7. COLECALCIFEROL (VITAMIN D) [Concomitant]
     Dosage: 20000 IE, 1X A WEEK
     Route: 048
  8. PREDNISOLON [Concomitant]
     Active Substance: PREDNISOLONE
     Dosage: 5 MILLIGRAM DAILY; 5 MG, 1-0-0-0
     Route: 048
  9. ACETYLSALICYLSAEURE [Concomitant]
     Active Substance: ASPIRIN
     Dosage: 100 MILLIGRAM DAILY; 100 MG, 0-1-0-0
     Route: 048

REACTIONS (6)
  - Localised infection [Unknown]
  - Product monitoring error [Unknown]
  - Pyrexia [Unknown]
  - Syncope [Unknown]
  - Labelled drug-drug interaction medication error [Unknown]
  - Abdominal distension [Unknown]
